FAERS Safety Report 8358040-6 (Version None)
Quarter: 2012Q2

REPORT INFORMATION
  Report Type: 
  Country: None (occurrence: None)
  Receive Date: 20120514
  Receipt Date: 20120501
  Transmission Date: 20120825
  Serious: Yes (Hospitalization)
  Sender: FDA-Public Use
  Company Number: US-MYLANLABS-2012S1009349

PATIENT
  Age: 79 Year
  Sex: Male

DRUGS (17)
  1. FERROUS SULFATE TAB [Concomitant]
     Dosage: 325MG DAILY
     Route: 065
  2. HYDRALAZINE HCL [Concomitant]
     Dosage: 100MG IN DIVIDED DOSES
     Route: 065
  3. ASPIRIN [Concomitant]
     Dosage: 81MG DAILY
     Route: 065
  4. INSULIN GLARGINE [Concomitant]
     Dosage: 70U DAILY
     Route: 065
  5. GEMFIBROZIL [Concomitant]
     Route: 065
  6. ERGOCALCIFEROL [Concomitant]
     Dosage: 50 000U TWICE MONTHLY
     Route: 065
  7. AMLODIPINE BESYLATE [Concomitant]
     Dosage: 10MG DAILY
     Route: 065
  8. LEVOTHYROXINE SODIUM [Concomitant]
     Dosage: 88MICROG DAILY
     Route: 065
  9. TRAVOPROST [Concomitant]
     Route: 047
  10. LISINOPRIL [Concomitant]
     Dosage: 20MG DAILY
     Route: 065
  11. SODIUM POLYSTYRENE SULFONATE [Concomitant]
     Dosage: 30G DAILY
     Route: 065
  12. FUROSEMIDE [Concomitant]
     Dosage: 40MG DAILY
     Route: 065
  13. LACTULOSE [Concomitant]
     Indication: CONSTIPATION
     Dosage: 20G AS NEEDED
     Route: 065
  14. SIMVASTATIN [Suspect]
     Dosage: 20 THEN 40MG DAILY
     Route: 065
  15. METOPROLOL TARTRATE [Concomitant]
     Dosage: 200MG DAILY
     Route: 065
  16. FINASTERIDE [Concomitant]
     Dosage: 5MG DAILY
     Route: 065
  17. DOXAZOSIN MESYLATE [Concomitant]
     Dosage: 8MG DAILY
     Route: 065

REACTIONS (2)
  - MUSCLE NECROSIS [None]
  - MYOPATHY [None]
